FAERS Safety Report 16936555 (Version 2)
Quarter: 2019Q4

REPORT INFORMATION
  Report Type: Report from Study
  Country: NL (occurrence: NL)
  Receive Date: 20191018
  Receipt Date: 20191210
  Transmission Date: 20200122
  Serious: No
  Sender: FDA-Public Use
  Company Number: NL-TOLMAR, INC.-19NL000557

PATIENT
  Age: 76 Year
  Sex: Male

DRUGS (3)
  1. ELIGARD [Suspect]
     Active Substance: LEUPROLIDE ACETATE
     Dosage: 45 MILLIGRAM, EVERY 6 MONTHS
     Route: 058
     Dates: start: 20190403
  2. ELIGARD [Suspect]
     Active Substance: LEUPROLIDE ACETATE
     Indication: PRODUCT USED FOR UNKNOWN INDICATION
     Dosage: 45 MILLIGRAM, EVERY 6 MONTHS
     Route: 058
     Dates: start: 20180330
  3. ELIGARD [Suspect]
     Active Substance: LEUPROLIDE ACETATE
     Dosage: 45 MILLIGRAM, EVERY 6 MONTHS
     Route: 058
     Dates: start: 20191002

REACTIONS (1)
  - Hot flush [Recovering/Resolving]

NARRATIVE: CASE EVENT DATE: 20190610
